FAERS Safety Report 21299423 (Version 1)
Quarter: 2022Q3

REPORT INFORMATION
  Report Type: Spontaneous
  Country: US (occurrence: US)
  Receive Date: 20220906
  Receipt Date: 20220906
  Transmission Date: 20221026
  Serious: Yes (Other)
  Sender: FDA-Public Use
  Company Number: US-JNJFOC-20220909405

PATIENT

DRUGS (27)
  1. DARZALEX [Suspect]
     Active Substance: DARATUMUMAB
     Indication: Plasma cell myeloma
     Route: 065
     Dates: start: 201608
  2. VELCADE [Suspect]
     Active Substance: BORTEZOMIB
     Indication: Plasma cell myeloma
     Route: 065
     Dates: start: 201608
  3. POMALIDOMIDE [Suspect]
     Active Substance: POMALIDOMIDE
     Indication: Plasma cell myeloma
     Route: 065
     Dates: start: 201710
  4. DEXAMETHASONE [Suspect]
     Active Substance: DEXAMETHASONE
     Indication: Plasma cell myeloma
     Route: 065
     Dates: start: 201710
  5. ASPIRIN [Concomitant]
     Active Substance: ASPIRIN
     Route: 048
  6. ATORVASTATIN [Concomitant]
     Active Substance: ATORVASTATIN
     Route: 048
  7. CALCIUM CARBONATE [Concomitant]
     Active Substance: CALCIUM CARBONATE
     Route: 048
  8. CALCIUM CITRATE;COLECALCIFEROL [Concomitant]
     Dosage: 315-250 MG
     Route: 048
  9. ELIQUIS [Concomitant]
     Active Substance: APIXABAN
     Route: 048
  10. HYPROMELLOSES [Concomitant]
     Active Substance: HYPROMELLOSES
     Route: 047
  11. LEVOTHYROXINE SODIUM [Concomitant]
     Active Substance: LEVOTHYROXINE SODIUM
     Route: 048
  12. LIDOCAINE;MENTHOL [Concomitant]
     Route: 061
  13. LIDOCAINE\PRILOCAINE [Concomitant]
     Active Substance: LIDOCAINE\PRILOCAINE
     Route: 061
  14. MORPHINE [Concomitant]
     Active Substance: MORPHINE
  15. VITAMINS WITH MINERALS [Concomitant]
     Active Substance: MINERALS\VITAMINS
     Route: 048
  16. NALOXONE [Concomitant]
     Active Substance: NALOXONE
     Route: 045
  17. NITROGLYCERIN [Concomitant]
     Active Substance: NITROGLYCERIN
  18. OMEPRAZOLE [Concomitant]
     Active Substance: OMEPRAZOLE
  19. ONDANSETRON [Concomitant]
     Active Substance: ONDANSETRON
     Route: 048
  20. PANCRELIPASE [Concomitant]
     Active Substance: PANCRELIPASE
     Route: 048
  21. POLYETHYLENE GLYCOL 3350 [Concomitant]
     Active Substance: POLYETHYLENE GLYCOL 3350
  22. PYRIDOXINE HYDROCHLORIDE [Concomitant]
     Active Substance: PYRIDOXINE HYDROCHLORIDE
     Route: 048
  23. RIFAXIMIN [Concomitant]
     Active Substance: RIFAXIMIN
     Route: 048
  24. SENNA AND DOCUSATE SODIUM [Concomitant]
     Active Substance: DOCUSATE SODIUM\SENNOSIDES
     Dosage: 8.6-50 MG
     Route: 048
  25. SIMETHICONE (DIMETHICONE) [Concomitant]
     Active Substance: DIMETHICONE
     Route: 048
  26. SODIUM FLUORIDE [Concomitant]
     Active Substance: SODIUM FLUORIDE
  27. VALACYCLOVIR [Concomitant]
     Active Substance: VALACYCLOVIR HYDROCHLORIDE
     Route: 048

REACTIONS (1)
  - Plasma cell myeloma [Unknown]

NARRATIVE: CASE EVENT DATE: 20171001
